FAERS Safety Report 4341590-7 (Version None)
Quarter: 2004Q2

REPORT INFORMATION
  Report Type: 
  Country: None (occurrence: None)
  Receive Date: 20040419
  Receipt Date: 20040419
  Transmission Date: 20050107
  Serious: Yes (Other)
  Sender: FDA-Public Use
  Company Number: None

PATIENT
  Sex: Female
  Weight: 86.1834 kg

DRUGS (1)
  1. PAROXETINE HCL [Suspect]
     Indication: DEPRESSION
     Dosage: 40 MG 1 TIMES A D ORAL
     Route: 048
     Dates: start: 20000501, end: 20040418

REACTIONS (8)
  - ALOPECIA [None]
  - ANXIETY [None]
  - DEPRESSION [None]
  - FATIGUE [None]
  - NAUSEA [None]
  - PAIN [None]
  - PARAESTHESIA [None]
  - TREATMENT NONCOMPLIANCE [None]
